FAERS Safety Report 9364352 (Version 1)
Quarter: 2013Q2

REPORT INFORMATION
  Report Type: Spontaneous
  Country: US (occurrence: US)
  Receive Date: 20130624
  Receipt Date: 20130624
  Transmission Date: 20140414
  Serious: Yes (Other)
  Sender: FDA-Public Use
  Company Number: US-PFIZER INC-2013184091

PATIENT
  Age: 71 Year
  Sex: Male
  Weight: 45.35 kg

DRUGS (4)
  1. LIPITOR [Suspect]
     Indication: BLOOD CHOLESTEROL INCREASED
     Dosage: 20 MG, 1X/DAY
  2. GLUCOTROL [Suspect]
     Indication: DIABETES MELLITUS
     Dosage: 10 MG, 1X/DAY
  3. NAMENDA [Concomitant]
     Indication: DEMENTIA ALZHEIMER^S TYPE
     Dosage: UNK
  4. SINEMET [Concomitant]
     Indication: PARKINSON^S DISEASE
     Dosage: [CARBIDOPA 25 MG]/ [LEVODOPA 100 MG], UNK

REACTIONS (6)
  - Weight decreased [Unknown]
  - Bedridden [Unknown]
  - Limb discomfort [Unknown]
  - Dysphagia [Unknown]
  - Wrong technique in drug usage process [Unknown]
  - Drug prescribing error [Unknown]
